FAERS Safety Report 6246159-5 (Version None)
Quarter: 2009Q2

REPORT INFORMATION
  Report Type: 
  Country: None (occurrence: None)
  Receive Date: 20090626
  Receipt Date: 20090519
  Transmission Date: 20091009
  Serious: No
  Sender: FDA-Public Use
  Company Number: A0785047A

PATIENT
  Age: 54 Year
  Sex: Female

DRUGS (18)
  1. IMITREX [Suspect]
     Indication: MIGRAINE
     Route: 048
  2. BENADRYL [Concomitant]
  3. TYLENOL SINUS [Concomitant]
  4. HYDROXYZINE [Concomitant]
  5. UNKNOWN MEDICATION [Concomitant]
  6. TROMETHAMINE [Concomitant]
  7. ENBREL [Concomitant]
  8. PREDNISONE [Concomitant]
  9. LEVOTHYROXINE SODIUM [Concomitant]
  10. DICLOFENAC [Concomitant]
  11. KLONOPIN [Concomitant]
  12. AMITRIPTYLINE HCL [Concomitant]
  13. METHOTREXATE [Concomitant]
  14. PAXIL [Concomitant]
  15. FOLIC ACID [Concomitant]
  16. LORATADINE [Concomitant]
  17. PROVERA [Concomitant]
  18. PREMARIN [Concomitant]

REACTIONS (1)
  - MIGRAINE [None]
